FAERS Safety Report 10526609 (Version 1)
Quarter: 2014Q4

REPORT INFORMATION
  Report Type: Spontaneous
  Country: US (occurrence: US)
  Receive Date: 20141020
  Receipt Date: 20141020
  Transmission Date: 20150528
  Serious: No
  Sender: FDA-Public Use
  Company Number: US-009507513-1410USA003546

PATIENT
  Age: 15 Year
  Sex: Female
  Weight: 48.98 kg

DRUGS (1)
  1. NEXPLANON [Suspect]
     Active Substance: ETONOGESTREL
     Indication: CONTRACEPTION
     Dosage: DOSE/FREQUENCY-1 ROD / 3 YEARS
     Route: 059
     Dates: start: 20140411

REACTIONS (3)
  - Paraesthesia [Unknown]
  - Menstrual disorder [Unknown]
  - Menorrhagia [Unknown]

NARRATIVE: CASE EVENT DATE: 201404
